FAERS Safety Report 17051672 (Version 2)
Quarter: 2021Q1

REPORT INFORMATION
  Report Type: Other
  Country: CA (occurrence: CA)
  Receive Date: 20191120
  Receipt Date: 20210210
  Transmission Date: 20210419
  Serious: Yes (Hospitalization)
  Sender: FDA-Public Use
  Company Number: CA-ROCHE-1932996

PATIENT
  Age: 74 Year
  Sex: Female

DRUGS (20)
  1. ESBRIET [Suspect]
     Active Substance: PIRFENIDONE
     Route: 048
     Dates: start: 201706
  2. ESBRIET [Suspect]
     Active Substance: PIRFENIDONE
     Dosage: 2?2?3
     Route: 048
     Dates: start: 20170717
  3. ESBRIET [Suspect]
     Active Substance: PIRFENIDONE
     Dosage: 3?3?2
     Route: 048
     Dates: start: 20180612
  4. ESBRIET [Suspect]
     Active Substance: PIRFENIDONE
     Route: 048
     Dates: start: 20190820
  5. ESBRIET [Suspect]
     Active Substance: PIRFENIDONE
     Route: 048
     Dates: start: 20170901
  6. ESBRIET [Suspect]
     Active Substance: PIRFENIDONE
     Route: 048
     Dates: start: 20171130
  7. ESBRIET [Suspect]
     Active Substance: PIRFENIDONE
     Dosage: 534 ? 534 ? 801 MG/DAY
     Route: 048
     Dates: start: 2017, end: 201708
  8. ESBRIET [Suspect]
     Active Substance: PIRFENIDONE
     Dosage: 9 PILLS PER DAY
     Route: 048
  9. ELIQUIS [Concomitant]
     Active Substance: APIXABAN
  10. ESBRIET [Suspect]
     Active Substance: PIRFENIDONE
     Indication: IDIOPATHIC PULMONARY FIBROSIS
     Route: 048
     Dates: start: 20170420
  11. ESBRIET [Suspect]
     Active Substance: PIRFENIDONE
     Route: 048
     Dates: start: 20170427
  12. ESBRIET [Suspect]
     Active Substance: PIRFENIDONE
     Route: 048
     Dates: start: 20170504
  13. ESBRIET [Suspect]
     Active Substance: PIRFENIDONE
     Route: 048
     Dates: start: 20170831
  14. ESBRIET [Suspect]
     Active Substance: PIRFENIDONE
     Dosage: 2?1?2
     Route: 048
     Dates: start: 20171011
  15. ESBRIET [Suspect]
     Active Substance: PIRFENIDONE
     Indication: IDIOPATHIC PULMONARY FIBROSIS
     Dosage: 7 PILLS PER DAY
     Route: 048
  16. LIPITOR [Concomitant]
     Active Substance: ATORVASTATIN CALCIUM
  17. PANTOLOC [Concomitant]
     Active Substance: PANTOPRAZOLE SODIUM
  18. SYMBICORT [Concomitant]
     Active Substance: BUDESONIDE\FORMOTEROL FUMARATE DIHYDRATE
  19. ESBRIET [Suspect]
     Active Substance: PIRFENIDONE
     Dosage: 1?1?2
     Route: 048
     Dates: start: 20170915
  20. BISOPROLOL [Concomitant]
     Active Substance: BISOPROLOL

REACTIONS (14)
  - Frequent bowel movements [Unknown]
  - Nausea [Unknown]
  - Feeding disorder [Recovering/Resolving]
  - Hyponatraemia [Unknown]
  - Diarrhoea [Recovered/Resolved]
  - Liver function test increased [Recovering/Resolving]
  - Back injury [Unknown]
  - Nausea [Recovered/Resolved]
  - Faeces soft [Not Recovered/Not Resolved]
  - Respiratory disorder [Recovered/Resolved]
  - Vomiting [Recovered/Resolved]
  - Malaise [Unknown]
  - Abdominal pain upper [Not Recovered/Not Resolved]
  - Diarrhoea [Unknown]

NARRATIVE: CASE EVENT DATE: 201705
